FAERS Safety Report 10016759 (Version 1)
Quarter: 2014Q1

REPORT INFORMATION
  Report Type: Spontaneous
  Country: CZ (occurrence: CZ)
  Receive Date: 20140318
  Receipt Date: 20140318
  Transmission Date: 20141002
  Serious: Yes (Other)
  Sender: FDA-Public Use
  Company Number: PHHY2014CZ028150

PATIENT
  Age: 25 Year
  Sex: Female

DRUGS (6)
  1. VALPROIC ACID [Suspect]
     Indication: EPILEPSY
     Dosage: 300 MG, PER DAY
  2. HEPARIN SODIUM [Suspect]
     Dosage: 3800 IU, PER DAY
     Route: 058
  3. HYDROXYCHLOROQUINE [Suspect]
     Dosage: 400 MG, PER DAY
  4. AZATHIOPRINE [Suspect]
     Dosage: 150 MG, PER DAY
  5. ASPIRIN [Suspect]
     Dosage: 100 MG, PER DAY
  6. CORTICOSTEROIDS [Suspect]
     Dosage: 20 MG, PER DAY

REACTIONS (4)
  - Proteinuria [Unknown]
  - Lupus nephritis [Unknown]
  - Premature labour [Unknown]
  - Maternal exposure during pregnancy [Unknown]
